FAERS Safety Report 18669929 (Version 1)
Quarter: 2020Q4

REPORT INFORMATION
  Report Type: Spontaneous
  Country: US (occurrence: US)
  Receive Date: 20201228
  Receipt Date: 20201228
  Transmission Date: 20210114
  Serious: Yes (Life-Threatening, Hospitalization, Other)
  Sender: FDA-Public Use
  Company Number: None

PATIENT
  Age: 41 Year
  Sex: Male
  Weight: 105 kg

DRUGS (5)
  1. CEFAZOLIN [Concomitant]
     Active Substance: CEFAZOLIN
     Dates: start: 20201211, end: 20201214
  2. DEXAMETHASONE. [Concomitant]
     Active Substance: DEXAMETHASONE
     Dates: start: 20201206, end: 20201224
  3. PIPERCILLIN-TAZOBACTAM [Concomitant]
     Active Substance: PIPERACILLIN SODIUM\TAZOBACTAM SODIUM
     Dates: start: 20201208, end: 20201211
  4. BARICITINIB. [Suspect]
     Active Substance: BARICITINIB
     Indication: COVID-19
     Route: 048
     Dates: start: 20201207, end: 20201220
  5. REMDESIVIR. [Concomitant]
     Active Substance: REMDESIVIR
     Dates: start: 20201207, end: 20201210

REACTIONS (11)
  - Shock [None]
  - Staphylococcal infection [None]
  - Bronchial secretion retention [None]
  - PaO2/FiO2 ratio decreased [None]
  - Acute kidney injury [None]
  - Respiratory distress [None]
  - Pneumonia bacterial [None]
  - Endotracheal intubation complication [None]
  - Procedural hypotension [None]
  - Blood pressure decreased [None]
  - Transfusion [None]

NARRATIVE: CASE EVENT DATE: 20201209
